FAERS Safety Report 8991356 (Version 1)
Quarter: 2012Q4

REPORT INFORMATION
  Report Type: Report from Study
  Country: US (occurrence: US)
  Receive Date: 20121230
  Receipt Date: 20121230
  Transmission Date: 20130627
  Serious: Yes (Other)
  Sender: FDA-Public Use
  Company Number: US-US-EMD SERONO, INC.-7184362

PATIENT
  Age: 42 None
  Sex: Female

DRUGS (1)
  1. REBIF [Suspect]
     Indication: PRODUCT USED FOR UNKNOWN INDICATION
     Route: 058
     Dates: start: 20061116

REACTIONS (4)
  - Cholelithiasis [Unknown]
  - Injection site scar [Unknown]
  - Injection site infection [Unknown]
  - Injection site pain [Unknown]
